FAERS Safety Report 23817747 (Version 1)
Quarter: 2024Q2

REPORT INFORMATION
  Report Type: Spontaneous
  Country: MX (occurrence: MX)
  Receive Date: 20240506
  Receipt Date: 20240506
  Transmission Date: 20240716
  Serious: Yes (Other)
  Sender: FDA-Public Use
  Company Number: MX-NOVOPROD-1205621

PATIENT
  Age: 62 Year
  Sex: Female
  Weight: 60 kg

DRUGS (1)
  1. XULTOPHY 100/3.6 [Suspect]
     Active Substance: INSULIN DEGLUDEC\LIRAGLUTIDE
     Indication: Type 2 diabetes mellitus
     Dosage: 36 IU, QD
     Route: 058

REACTIONS (4)
  - Intervertebral disc protrusion [Unknown]
  - Spinal stenosis [Unknown]
  - Nerve compression [Unknown]
  - Glycosylated haemoglobin abnormal [Unknown]
